FAERS Safety Report 16987814 (Version 2)
Quarter: 2025Q3

REPORT INFORMATION
  Report Type: Report from Study
  Country: US (occurrence: US)
  Receive Date: 20191104
  Receipt Date: 20250709
  Transmission Date: 20251021
  Serious: Yes (Other)
  Sender: AUROBINDO
  Company Number: US-AUROBINDO-AUR-APL-2019-070140

PATIENT
  Age: 19 Year
  Sex: Male

DRUGS (4)
  1. MEMANTINE [Suspect]
     Active Substance: MEMANTINE
     Indication: Catatonia
     Route: 065
  2. LORAZEPAM [Concomitant]
     Active Substance: LORAZEPAM
     Indication: Catatonia
     Dosage: TITRATED TO A MAXIMUM DOSE OF 20 MG/DAY OVER AN 11-MONTH PERIOD
     Route: 048
  3. LORAZEPAM [Concomitant]
     Active Substance: LORAZEPAM
     Route: 048
     Dates: start: 201306
  4. LORAZEPAM [Concomitant]
     Active Substance: LORAZEPAM
     Dosage: 3.5 MILLIGRAM, ONCE A DAY(WHICH PARENTS INCREASE TO 4.5 MG IF SYMPTOMS INCREASE)
     Route: 065

REACTIONS (2)
  - Catatonia [Unknown]
  - Condition aggravated [Unknown]
